FAERS Safety Report 7220877-4 (Version None)
Quarter: 2011Q1

REPORT INFORMATION
  Report Type: 
  Country: None (occurrence: None)
  Receive Date: 20110112
  Receipt Date: 20101230
  Transmission Date: 20110831
  Serious: Yes (Death, Hospitalization)
  Sender: FDA-Public Use
  Company Number: US-CELGENEUS-163-21880-10123369

PATIENT
  Sex: Female
  Weight: 111 kg

DRUGS (27)
  1. XALATAN [Concomitant]
     Route: 065
  2. AMLODIPINE [Concomitant]
     Route: 048
  3. SINGULAIR [Concomitant]
     Route: 065
  4. MIRALAX [Concomitant]
     Dosage: 17
     Route: 065
  5. IBUPROFEN [Concomitant]
     Route: 065
  6. COLCHICINE [Concomitant]
     Route: 048
  7. ASPIRIN [Concomitant]
     Route: 048
  8. MORPHINE [Concomitant]
     Dosage: 15 MG 30 MG
     Route: 065
  9. ACYCLOVIR [Concomitant]
     Route: 065
  10. ZANTAC [Concomitant]
     Route: 065
  11. DEXAMETHASONE [Suspect]
     Route: 065
     Dates: start: 20100403
  12. ONDANSETRON HCL [Concomitant]
     Route: 048
  13. KLOR-CON M20 [Concomitant]
     Route: 065
  14. COMPAZINE [Concomitant]
     Route: 065
  15. BORTEZOMIB [Suspect]
     Indication: MULTIPLE MYELOMA
     Route: 065
  16. GLYBURIDE [Concomitant]
     Route: 065
  17. LORATADINE [Concomitant]
     Route: 048
  18. REVLIMID [Suspect]
     Route: 048
     Dates: start: 20101113, end: 20101203
  19. ALBUTEROL SULFATE [Concomitant]
     Dosage: 90 MCG/ACTUATION
     Route: 055
  20. ALLOPURINOL [Concomitant]
     Route: 048
  21. METOPROLOL [Concomitant]
     Route: 048
  22. DEXAMETHASONE [Suspect]
     Indication: MULTIPLE MYELOMA
     Route: 065
     Dates: start: 20100220
  23. OXYCODONE [Concomitant]
     Route: 065
  24. REVLIMID [Suspect]
     Indication: MULTIPLE MYELOMA
     Route: 048
     Dates: start: 20100403
  25. SENNA S [Concomitant]
     Dosage: 2
     Route: 065
  26. OSCAL [Concomitant]
     Route: 048
  27. MAGOXIDE [Concomitant]
     Route: 048

REACTIONS (2)
  - PAIN [None]
  - DISEASE PROGRESSION [None]
